FAERS Safety Report 7150138-3 (Version None)
Quarter: 2010Q4

REPORT INFORMATION
  Report Type: 
  Country: None (occurrence: None)
  Receive Date: 20101126
  Receipt Date: 20101117
  Transmission Date: 20110411
  Serious: Yes (Hospitalization, Other)
  Sender: FDA-Public Use
  Company Number: 2010SP040278

PATIENT
  Age: 40 Year
  Sex: Female
  Weight: 83.9154 kg

DRUGS (2)
  1. NUVARING [Suspect]
     Indication: CONTRACEPTION
     Dosage: VAG
     Route: 067
     Dates: start: 20050805, end: 20061127
  2. ASPIRIN [Concomitant]

REACTIONS (5)
  - DEEP VEIN THROMBOSIS [None]
  - EMBOLISM VENOUS [None]
  - HYPERCOAGULATION [None]
  - MENTAL DISORDER [None]
  - PULMONARY EMBOLISM [None]
